FAERS Safety Report 9660940 (Version 1)
Quarter: 2013Q4

REPORT INFORMATION
  Report Type: Other
  Country: FR (occurrence: FR)
  Receive Date: 20131031
  Receipt Date: 20131031
  Transmission Date: 20140711
  Serious: Yes (Other)
  Sender: FDA-Public Use
  Company Number: FR-JHP PHARMACEUTICALS, LLC-JHP201300660

PATIENT
  Age: 31 Year
  Sex: Female

DRUGS (10)
  1. DANTRIUM [Suspect]
     Dosage: 2 DF, TID
     Route: 048
  2. DANTRIUM [Interacting]
     Dosage: 150 MG, DAILY
     Route: 048
     Dates: start: 20130618
  3. DANTRIUM [Interacting]
     Dosage: 75 MG, DAILY
     Route: 048
     Dates: start: 20130705
  4. DYSPORT [Interacting]
     Dosage: 1500 IU, UNK
     Route: 030
     Dates: start: 20130617, end: 20130617
  5. LYRICA [Concomitant]
     Dosage: 200 MG, UNK
  6. BACLOFEN [Concomitant]
  7. VESICARE [Concomitant]
     Dosage: 2 DF, DAILY
  8. ZOLOFT [Concomitant]
     Dosage: 2 DF, DAILY
  9. DUPHALAC [Concomitant]
     Dosage: 4 DF, DAILY
  10. EDUCTYL [Concomitant]
     Dosage: 1 DF, DAILY

REACTIONS (7)
  - Drug interaction [Recovered/Resolved]
  - Asthenia [Recovered/Resolved]
  - Accommodation disorder [Recovered/Resolved]
  - Dry mouth [Recovered/Resolved]
  - Dysphagia [Recovered/Resolved]
  - Muscular weakness [Recovered/Resolved]
  - Dyspnoea exertional [Recovered/Resolved]
